FAERS Safety Report 13682618 (Version 2)
Quarter: 2017Q2

REPORT INFORMATION
  Report Type: Spontaneous
  Country: US (occurrence: US)
  Receive Date: 20170623
  Receipt Date: 20170623
  Transmission Date: 20170830
  Serious: No
  Sender: FDA-Public Use
  Company Number: US-MALLINCKRODT-T201603076

PATIENT
  Sex: Male

DRUGS (2)
  1. H.P. ACTHAR [Suspect]
     Active Substance: CORTICOTROPIN
     Dosage: 80 UNITS ONCE DAILY
     Route: 065
     Dates: start: 201606, end: 201607
  2. H.P. ACTHAR [Suspect]
     Active Substance: CORTICOTROPIN
     Indication: DERMATOMYOSITIS
     Dosage: 80 UNITS TWICE WEEKLY
     Route: 065
     Dates: start: 201605, end: 201606

REACTIONS (3)
  - Therapy cessation [Unknown]
  - Cushingoid [Unknown]
  - Nervousness [Unknown]

NARRATIVE: CASE EVENT DATE: 2016
